FAERS Safety Report 11629387 (Version 1)
Quarter: 2015Q4

REPORT INFORMATION
  Report Type: Report from Study
  Country: US (occurrence: US)
  Receive Date: 20151014
  Receipt Date: 20151014
  Transmission Date: 20160304
  Serious: Yes (Death, Hospitalization)
  Sender: FDA-Public Use
  Company Number: US-JNJFOC-20150819127

PATIENT
  Age: 62 Year
  Sex: Female
  Weight: 134 kg

DRUGS (18)
  1. PRAVASTATIN [Concomitant]
     Active Substance: PRAVASTATIN\PRAVASTATIN SODIUM
     Route: 048
  2. ACYCLOVIR. [Concomitant]
     Active Substance: ACYCLOVIR
     Route: 048
  3. ALBUTEROL. [Concomitant]
     Active Substance: ALBUTEROL
     Dosage: 2 PUFFS, AEROSOL(SPRAY AND INHALATION)
  4. TRAMADOL. [Concomitant]
     Active Substance: TRAMADOL
     Dosage: QID PRN
     Route: 048
  5. GABAPENTIN. [Concomitant]
     Active Substance: GABAPENTIN
     Route: 048
  6. MOMETASONE [Concomitant]
     Active Substance: MOMETASONE
     Dosage: 1 APPLICATION, BID PRN
     Route: 061
  7. DOXYCYCLINE. [Concomitant]
     Active Substance: DOXYCYCLINE
     Dosage: 1DF
     Route: 048
  8. LEVOTHYROXINE. [Concomitant]
     Active Substance: LEVOTHYROXINE
     Route: 048
  9. IMBRUVICA [Suspect]
     Active Substance: IBRUTINIB
     Indication: CHRONIC LYMPHOCYTIC LEUKAEMIA
     Route: 048
     Dates: start: 20150122, end: 20150814
  10. ADVAIR HFA [Concomitant]
     Active Substance: FLUTICASONE PROPIONATE\SALMETEROL XINAFOATE
     Dosage: 1 PUFF, BID PRN
  11. NORMAL SALINE SOLUTION [Concomitant]
     Dosage: SOLUTION(EXCEPT SYRUP)
  12. TYLENOL [Concomitant]
     Active Substance: ACETAMINOPHEN
     Dosage: ALSO REPORTED AS 1300MG
     Route: 048
  13. ALLOPURINOL. [Concomitant]
     Active Substance: ALLOPURINOL
     Route: 048
  14. PANTOPRAZOLE [Concomitant]
     Active Substance: PANTOPRAZOLE SODIUM
  15. VITAMIN D3 [Concomitant]
     Active Substance: CHOLECALCIFEROL
     Dosage: 1DF
     Route: 048
  16. CYCLOBENZAPRINE [Concomitant]
     Active Substance: CYCLOBENZAPRINE
     Route: 048
  17. ECONAZOLE [Concomitant]
     Active Substance: ECONAZOLE
     Dosage: 1 APPLICATION
     Route: 061
  18. METOPROLOL [Concomitant]
     Active Substance: METOPROLOL
     Route: 048

REACTIONS (2)
  - Multi-organ failure [Fatal]
  - Cardiac tamponade [Unknown]

NARRATIVE: CASE EVENT DATE: 201508
